FAERS Safety Report 18637618 (Version 2)
Quarter: 2022Q1

REPORT INFORMATION
  Report Type: Report from Study
  Country: DE (occurrence: DE)
  Receive Date: 20201218
  Receipt Date: 20220204
  Transmission Date: 20220423
  Serious: Yes (Hospitalization, Other)
  Sender: FDA-Public Use
  Company Number: DE-SHIRE-DE201847076

PATIENT
  Age: 74 Year
  Sex: Male
  Weight: 86 kg

DRUGS (21)
  1. TEDUGLUTIDE [Suspect]
     Active Substance: TEDUGLUTIDE
     Indication: Short-bowel syndrome
     Dosage: 0.4 ML, 1X/DAY:QD
     Route: 058
     Dates: start: 20170503, end: 20181203
  2. TEDUGLUTIDE [Suspect]
     Active Substance: TEDUGLUTIDE
     Indication: Short-bowel syndrome
     Dosage: 0.4 ML, 1X/DAY:QD
     Route: 058
     Dates: start: 20170503, end: 20181203
  3. TEDUGLUTIDE [Suspect]
     Active Substance: TEDUGLUTIDE
     Indication: Short-bowel syndrome
     Dosage: 0.4 ML, 1X/DAY:QD
     Route: 058
     Dates: start: 20170503, end: 20181203
  4. TEDUGLUTIDE [Suspect]
     Active Substance: TEDUGLUTIDE
     Indication: Short-bowel syndrome
     Dosage: 0.4 ML, 1X/DAY:QD
     Route: 058
     Dates: start: 20170503, end: 20181203
  5. TEDUGLUTIDE [Suspect]
     Active Substance: TEDUGLUTIDE
     Dosage: 0.4 ML, 1X/DAY:QD
     Route: 058
     Dates: start: 20181222
  6. TEDUGLUTIDE [Suspect]
     Active Substance: TEDUGLUTIDE
     Dosage: 0.4 ML, 1X/DAY:QD
     Route: 058
     Dates: start: 20181222
  7. TEDUGLUTIDE [Suspect]
     Active Substance: TEDUGLUTIDE
     Dosage: 0.4 ML, 1X/DAY:QD
     Route: 058
     Dates: start: 20181222
  8. TEDUGLUTIDE [Suspect]
     Active Substance: TEDUGLUTIDE
     Dosage: 0.4 ML, 1X/DAY:QD
     Route: 058
     Dates: start: 20181222
  9. TEDUGLUTIDE [Suspect]
     Active Substance: TEDUGLUTIDE
     Dosage: 0.4 ML, 1X/DAY:QD
     Route: 058
     Dates: start: 20170503
  10. TEDUGLUTIDE [Suspect]
     Active Substance: TEDUGLUTIDE
     Dosage: 0.4 ML, 1X/DAY:QD
     Route: 058
     Dates: start: 20170503
  11. TEDUGLUTIDE [Suspect]
     Active Substance: TEDUGLUTIDE
     Dosage: 0.4 ML, 1X/DAY:QD
     Route: 058
     Dates: start: 20170503
  12. TEDUGLUTIDE [Suspect]
     Active Substance: TEDUGLUTIDE
     Dosage: 0.4 ML, 1X/DAY:QD
     Route: 058
     Dates: start: 20170503
  13. TEDUGLUTIDE [Suspect]
     Active Substance: TEDUGLUTIDE
     Dosage: 0.2 MILLILITER, QD
     Route: 058
  14. TEDUGLUTIDE [Suspect]
     Active Substance: TEDUGLUTIDE
     Dosage: 0.2 MILLILITER, QD
     Route: 058
  15. TEDUGLUTIDE [Suspect]
     Active Substance: TEDUGLUTIDE
     Dosage: 0.2 MILLILITER, QD
     Route: 058
  16. TEDUGLUTIDE [Suspect]
     Active Substance: TEDUGLUTIDE
     Dosage: 0.2 MILLILITER, QD
     Route: 058
  17. ASPIRIN [Concomitant]
     Active Substance: ASPIRIN
     Indication: Product used for unknown indication
  18. PANTOPRAZOLE [Concomitant]
     Active Substance: PANTOPRAZOLE
     Indication: Product used for unknown indication
  19. LOPERAMIDE [Concomitant]
     Active Substance: LOPERAMIDE
     Indication: Product used for unknown indication
  20. CHOLECALCIFEROL [Concomitant]
     Active Substance: CHOLECALCIFEROL
     Indication: Product used for unknown indication
  21. ENOXAPARIN SODIUM [Concomitant]
     Active Substance: ENOXAPARIN SODIUM
     Indication: Product used for unknown indication

REACTIONS (12)
  - Peritoneal adhesions [Unknown]
  - Intestinal perforation [Unknown]
  - Electrolyte imbalance [Recovered/Resolved]
  - Postoperative wound infection [Unknown]
  - Large intestine perforation [Unknown]
  - Chronic kidney disease [Unknown]
  - Benign prostatic hyperplasia [Unknown]
  - Bile duct stone [Unknown]
  - Cholangitis [Unknown]
  - Intestinal obstruction [Unknown]
  - Myocardial infarction [Recovering/Resolving]
  - Medication error [Recovered/Resolved]

NARRATIVE: CASE EVENT DATE: 20201030
